FAERS Safety Report 4674375-2 (Version None)
Quarter: 2005Q2

REPORT INFORMATION
  Report Type: 
  Country: None (occurrence: None)
  Receive Date: 20050524
  Receipt Date: 20050509
  Transmission Date: 20051028
  Serious: Yes (Death, Life-Threatening, Hospitalization)
  Sender: FDA-Public Use
  Company Number: P200500009

PATIENT
  Age: 75 Year
  Sex: Male

DRUGS (18)
  1. PLENAXIS [Suspect]
     Indication: PROSTATE CANCER METASTATIC
     Dosage: 100 MG, SINGLE, INTRAMUSCULAR
     Route: 030
     Dates: start: 20050429, end: 20050429
  2. DUONEB (IPRATROPIUM BROMIDE, SALBUTAMOL SULFATE) [Concomitant]
  3. VITAMIN C (ASCORBIC ACID) [Concomitant]
  4. ZINC SULFATE (ZINC SULFATE) [Concomitant]
  5. LASIX [Concomitant]
  6. LORTAB [Concomitant]
  7. MORPHINE SULFATE [Concomitant]
  8. ASPIRIN [Concomitant]
  9. CASODEX [Concomitant]
  10. LANOXIN [Concomitant]
  11. PROTEIN SUPPLEMENTS [Concomitant]
  12. PRILOSEC [Concomitant]
  13. PROTONIX [Concomitant]
  14. ARGINARD [Concomitant]
  15. MULTIVITAMINS (THIAMINE HYDROCHLORIDE, RETINOL, NICOTINAMIDE, RIBOFLAV [Concomitant]
  16. DURAGESIC [Concomitant]
  17. ORDARONE [Concomitant]
  18. LOPRESSOR [Concomitant]

REACTIONS (11)
  - ATRIAL FIBRILLATION [None]
  - CARDIAC FAILURE CONGESTIVE [None]
  - CREPITATIONS [None]
  - DISEASE PROGRESSION [None]
  - DYSPNOEA [None]
  - ELECTROCARDIOGRAM T WAVE INVERSION [None]
  - HYPOXIA [None]
  - METASTASIS [None]
  - REFUSAL OF TREATMENT BY PATIENT [None]
  - RESPIRATORY DISTRESS [None]
  - RESPIRATORY RATE INCREASED [None]
